FAERS Safety Report 19485775 (Version 1)
Quarter: 2021Q3

REPORT INFORMATION
  Report Type: Spontaneous
  Country: US (occurrence: US)
  Receive Date: 20210701
  Receipt Date: 20210701
  Transmission Date: 20211014
  Serious: Yes (Hospitalization)
  Sender: FDA-Public Use
  Company Number: None

PATIENT
  Sex: Female
  Weight: 38.8 kg

DRUGS (4)
  1. MYLOTARG [Concomitant]
     Active Substance: GEMTUZUMAB OZOGAMICIN
  2. DAUNORUBICIN [Concomitant]
     Active Substance: DAUNORUBICIN
  3. CYTARABINE. [Suspect]
     Active Substance: CYTARABINE
  4. ZINECARD [Concomitant]
     Active Substance: DEXRAZOXANE HYDROCHLORIDE

REACTIONS (4)
  - Transaminases increased [None]
  - Gamma-glutamyltransferase increased [None]
  - Cholelithiasis [None]
  - Hypophagia [None]

NARRATIVE: CASE EVENT DATE: 20210626
